FAERS Safety Report 7859344-3 (Version None)
Quarter: 2011Q4

REPORT INFORMATION
  Report Type: 
  Country: None (occurrence: None)
  Receive Date: 20111020
  Receipt Date: 20111012
  Transmission Date: 20120403
  Serious: Yes (Hospitalization)
  Sender: FDA-Public Use
  Company Number: 2011029334

PATIENT
  Sex: Male
  Weight: 126.1 kg

DRUGS (16)
  1. POTASSIUM CHLORIDE [Concomitant]
  2. HYDRALAZINE HCL [Concomitant]
  3. DUONEB [Concomitant]
  4. ZANTAC [Concomitant]
  5. PROZAC [Concomitant]
  6. MIRALAX [Concomitant]
  7. ZEMAIRA [Suspect]
     Route: 042
  8. IBUPROFEN [Concomitant]
  9. HYDROCODONE-APAP (HYDROCODONE) [Concomitant]
  10. CARDIZEM [Concomitant]
  11. COREG [Concomitant]
  12. ZEMAIRA [Suspect]
     Indication: ALPHA-1 ANTI-TRYPSIN DEFICIENCY
     Dosage: SEE IMAGE
     Route: 042
     Dates: start: 20110101
  13. ZEMAIRA [Suspect]
     Indication: ALPHA-1 ANTI-TRYPSIN DEFICIENCY
     Dosage: SEE IMAGE
     Route: 042
     Dates: start: 20100127
  14. LANTUS [Concomitant]
  15. LISINOPRIL-HCTZ (PRINZIDE /00977901/) [Concomitant]
  16. VANCOMYCIN [Concomitant]

REACTIONS (3)
  - WOUND [None]
  - INFECTION [None]
  - HAEMATOTOXICITY [None]
